FAERS Safety Report 7354157-3 (Version None)
Quarter: 2011Q1

REPORT INFORMATION
  Report Type: 
  Country: None (occurrence: None)
  Receive Date: 20110316
  Receipt Date: 20110308
  Transmission Date: 20110831
  Serious: Yes (Hospitalization, Other)
  Sender: FDA-Public Use
  Company Number: AR-AMGEN-ARGSP2011010997

PATIENT
  Sex: Female
  Weight: 59 kg

DRUGS (4)
  1. CALCIUM [Concomitant]
     Dosage: UNK
  2. ATENOLOL [Concomitant]
     Dosage: 25 MG, UNK
     Route: 048
  3. ENBREL [Suspect]
     Indication: RHEUMATOID ARTHRITIS
     Dosage: 50 MG, WEEKLY
     Route: 058
     Dates: start: 20080101
  4. HYDROXYCHLOROQUINE [Concomitant]
     Dosage: UNK

REACTIONS (4)
  - DIVERTICULUM INTESTINAL [None]
  - URINARY TRACT INFECTION [None]
  - INGROWING NAIL [None]
  - INTESTINAL OBSTRUCTION [None]
